FAERS Safety Report 10143314 (Version 2)
Quarter: 2014Q2

REPORT INFORMATION
  Report Type: Spontaneous
  Country: ZA (occurrence: ZA)
  Receive Date: 20140430
  Receipt Date: 20140513
  Transmission Date: 20141212
  Serious: Yes (Death)
  Sender: FDA-Public Use
  Company Number: ZA-MERCK-1404ZAF013887

PATIENT
  Age: 7 Month
  Sex: Female

DRUGS (1)
  1. CANCIDAS 50MG [Suspect]
     Dosage: UNK

REACTIONS (2)
  - Death [Fatal]
  - Pneumonia [Unknown]
